FAERS Safety Report 19088760 (Version 1)
Quarter: 2021Q2

REPORT INFORMATION
  Report Type: Spontaneous
  Country: US (occurrence: US)
  Receive Date: 20210403
  Receipt Date: 20210403
  Transmission Date: 20210717
  Serious: No
  Sender: FDA-Public Use
  Company Number: US-LUPIN PHARMACEUTICALS INC.-2021-04015

PATIENT
  Age: 51 Year
  Sex: Male

DRUGS (11)
  1. PREDNISONE. [Concomitant]
     Active Substance: PREDNISONE
     Indication: CHOLANGITIS SCLEROSING
     Dosage: UNK ADMINISTERED AT A TROUGH INFLIXIMAB DRUG LEVEL OF 19 MCG/ML
     Route: 065
  2. VANCOMYCIN [Suspect]
     Active Substance: VANCOMYCIN
     Indication: COLITIS ULCERATIVE
     Dosage: 125 MILLIGRAM, BID
     Route: 048
  3. VANCOMYCIN [Suspect]
     Active Substance: VANCOMYCIN
     Indication: CHOLANGITIS SCLEROSING
  4. MESALAMINE. [Concomitant]
     Active Substance: MESALAMINE
     Indication: COLITIS ULCERATIVE
     Dosage: 1200 MILLIGRAM, BID
     Route: 048
  5. MYCOPHENOLATE MOFETIL. [Concomitant]
     Active Substance: MYCOPHENOLATE MOFETIL
     Indication: IMMUNOSUPPRESSANT DRUG THERAPY
     Dosage: 1000 MILLIGRAM, BID
     Route: 065
  6. VEDOLIZUMAB [Concomitant]
     Active Substance: VEDOLIZUMAB
     Indication: CHOLANGITIS SCLEROSING
     Dosage: 300 MILLIGRAM FREQUENCY INCREASED TO EVERY 4 WEEKS
     Route: 065
  7. INFLIXIMAB [Concomitant]
     Active Substance: INFLIXIMAB
     Indication: COLITIS ULCERATIVE
     Dosage: 10 MILLIGRAM/KILOGRAM
     Route: 065
  8. TACROLIMUS. [Concomitant]
     Active Substance: TACROLIMUS
     Indication: IMMUNOSUPPRESSANT DRUG THERAPY
     Dosage: 1 MILLIGRAM, BID
     Route: 065
  9. PREDNISONE. [Concomitant]
     Active Substance: PREDNISONE
     Indication: COLITIS ULCERATIVE
     Dosage: 40 MILLIGRAM, QD
     Route: 065
  10. VEDOLIZUMAB [Concomitant]
     Active Substance: VEDOLIZUMAB
     Indication: COLITIS ULCERATIVE
     Dosage: 300 MILLIGRAM, UNK
     Route: 065
  11. INFLIXIMAB [Concomitant]
     Active Substance: INFLIXIMAB
     Dosage: UNK AFTER 22 WEEKS OF INITIATION, FREQUENCY INCREASED TO EVERY 4 WEEKS
     Route: 065

REACTIONS (1)
  - Off label use [Unknown]
